FAERS Safety Report 8776594 (Version 1)
Quarter: 2012Q4

REPORT INFORMATION
  Report Type: 
  Country: FR (occurrence: FR)
  Receive Date: 20120910
  Receipt Date: 20120910
  Transmission Date: 20130627
  Serious: Yes (Other)
  Sender: FDA-Public Use
  Company Number: PHHY2012FR078196

PATIENT
  Sex: Female

DRUGS (5)
  1. MYFORTIC [Suspect]
     Indication: RENAL TRANSPLANT
     Dosage: 360 mg in the morning and 180 mg in the evening
  2. CORTANCYL [Concomitant]
     Indication: RENAL TRANSPLANT
  3. PROGRAF [Concomitant]
     Indication: RENAL TRANSPLANT
  4. OROKEN [Concomitant]
  5. PROTON PUMP INHIBITORS [Concomitant]

REACTIONS (3)
  - Fall [Unknown]
  - Vomiting [Unknown]
  - Vomiting [None]
